FAERS Safety Report 10948046 (Version 1)
Quarter: 2015Q1

REPORT INFORMATION
  Report Type: Spontaneous
  Country: US (occurrence: US)
  Receive Date: 20150324
  Receipt Date: 20150324
  Transmission Date: 20150721
  Serious: Yes (Death, Other)
  Sender: FDA-Public Use
  Company Number: US-CIPLA LTD.-2015US02218

PATIENT

DRUGS (3)
  1. PAROXETINE [Suspect]
     Active Substance: PAROXETINE\PAROXETINE HYDROCHLORIDE
  2. LAMOTRIGINE. [Suspect]
     Active Substance: LAMOTRIGINE
  3. MITRAGYNINE [Suspect]
     Active Substance: MITRAGYNINE

REACTIONS (7)
  - Hypoxic-ischaemic encephalopathy [Fatal]
  - Pulmonary embolism [Unknown]
  - Pulmonary infarction [Unknown]
  - Brain stem haemorrhage [Unknown]
  - Brain death [Unknown]
  - Toxicity to various agents [Fatal]
  - Thrombosis [Unknown]
